FAERS Safety Report 16696469 (Version 2)
Quarter: 2019Q3

REPORT INFORMATION
  Report Type: Spontaneous
  Country: US (occurrence: US)
  Receive Date: 20190813
  Receipt Date: 20190906
  Transmission Date: 20191004
  Serious: No
  Sender: FDA-Public Use
  Company Number: US-ASTRAZENECA-2019SF13869

PATIENT
  Sex: Male
  Weight: 122.5 kg

DRUGS (1)
  1. SYMBICORT [Suspect]
     Active Substance: BUDESONIDE\FORMOTEROL FUMARATE DIHYDRATE
     Dosage: SYMBICORT 160/4.5 MCG UNKNOWN
     Route: 055

REACTIONS (8)
  - Dyspnoea [Unknown]
  - Product packaging quantity issue [Unknown]
  - Product dose omission [Unknown]
  - Cough [Unknown]
  - Chest pain [Unknown]
  - Lung disorder [Unknown]
  - Taste disorder [Unknown]
  - Intentional device misuse [Unknown]
